FAERS Safety Report 25866247 (Version 1)
Quarter: 2025Q3

REPORT INFORMATION
  Report Type: Spontaneous
  Country: None (occurrence: AR)
  Receive Date: 20250930
  Receipt Date: 20250930
  Transmission Date: 20251020
  Serious: Yes (Disabling)
  Sender: ALNYLAM PHARMACEUTICALS
  Company Number: AR-ALNYLAM PHARMACEUTICALS, INC.-ALN-2025-005591

PATIENT
  Age: 26 Year
  Weight: 58 kg

DRUGS (2)
  1. ONPATTRO [Suspect]
     Active Substance: PATISIRAN SODIUM
     Indication: Product used for unknown indication
     Route: 065
  2. ONPATTRO [Suspect]
     Active Substance: PATISIRAN SODIUM
     Route: 065

REACTIONS (3)
  - Tachycardia [Unknown]
  - Dizziness [Unknown]
  - Asthenia [Unknown]
